FAERS Safety Report 13490789 (Version 4)
Quarter: 2018Q2

REPORT INFORMATION
  Report Type: Report from Study
  Country: US (occurrence: US)
  Receive Date: 20170427
  Receipt Date: 20180517
  Transmission Date: 20180711
  Serious: Yes (Death, Hospitalization, Other)
  Sender: FDA-Public Use
  Company Number: US-AMGEN-USASL2017061162

PATIENT
  Age: 85 Year
  Sex: Female
  Weight: 112.6 kg

DRUGS (1)
  1. PROLIA [Suspect]
     Active Substance: DENOSUMAB
     Indication: PRODUCT USED FOR UNKNOWN INDICATION
     Dosage: 60 MG, Q6MO
     Route: 058
     Dates: start: 20160822

REACTIONS (5)
  - Gastrointestinal haemorrhage [Unknown]
  - Anaemia [Unknown]
  - Chondrocalcinosis pyrophosphate [Unknown]
  - Cardiac failure congestive [Fatal]
  - Acute respiratory failure [Fatal]
